FAERS Safety Report 17466597 (Version 1)
Quarter: 2020Q1

REPORT INFORMATION
  Report Type: Spontaneous
  Country: JP (occurrence: JP)
  Receive Date: 20200227
  Receipt Date: 20200227
  Transmission Date: 20200409
  Serious: Yes (Other)
  Sender: FDA-Public Use
  Company Number: NVSJ2020JP002159

PATIENT
  Age: 62 Year
  Sex: Female

DRUGS (2)
  1. ZOLEDRONIC ACID [Suspect]
     Active Substance: ZOLEDRONIC ACID
     Indication: FOLLICULAR THYROID CANCER
     Dosage: UNK
     Route: 041
     Dates: start: 201308, end: 201410
  2. ZOLEDRONIC ACID [Suspect]
     Active Substance: ZOLEDRONIC ACID
     Indication: METASTASES TO BONE

REACTIONS (1)
  - Osteonecrosis of jaw [Unknown]
